FAERS Safety Report 21211160 (Version 1)
Quarter: 2022Q3

REPORT INFORMATION
  Report Type: Spontaneous
  Country: US (occurrence: None)
  Receive Date: 20220812
  Receipt Date: 20220812
  Transmission Date: 20221027
  Serious: No
  Sender: FDA-Public Use
  Company Number: None

PATIENT
  Sex: Female

DRUGS (1)
  1. DALFAMPRIDINE [Suspect]
     Active Substance: DALFAMPRIDINE
     Indication: Multiple sclerosis
     Dosage: 10MG TWICE DAILY ORAL?
     Route: 048
     Dates: start: 201812

REACTIONS (3)
  - Trigeminal neuralgia [None]
  - Condition aggravated [None]
  - Blood sodium decreased [None]
